FAERS Safety Report 5639940-4 (Version None)
Quarter: 2008Q1

REPORT INFORMATION
  Report Type: 
  Country: None (occurrence: None)
  Receive Date: 20080225
  Receipt Date: 20080225
  Transmission Date: 20080703
  Serious: Yes (Other)
  Sender: FDA-Public Use
  Company Number: None

PATIENT
  Sex: Female
  Weight: 79.3795 kg

DRUGS (9)
  1. PANTOPRAZOLE SODIUM [Suspect]
     Indication: GASTROOESOPHAGEAL REFLUX DISEASE
     Dosage: 40MG Q D PO
     Route: 048
     Dates: start: 20080222, end: 20080222
  2. RESTASIS [Concomitant]
  3. EFFEXOR XR [Concomitant]
  4. LIPITOR [Concomitant]
  5. PANTOPRAZOLE [Concomitant]
  6. PRIMIDONE [Concomitant]
  7. MECLIZINE HCL [Concomitant]
  8. TRIAMTERENE AND HYDROCHLOROTHIAZIDE [Concomitant]
  9. BISOPROLOL FUMARATE AND HYDROCHLOROTHIAZIDE [Concomitant]

REACTIONS (2)
  - ERYTHEMA [None]
  - PRURITUS [None]
